FAERS Safety Report 24285602 (Version 2)
Quarter: 2025Q1

REPORT INFORMATION
  Report Type: Spontaneous
  Country: JP (occurrence: JP)
  Receive Date: 20240905
  Receipt Date: 20250115
  Transmission Date: 20250408
  Serious: Yes (Death)
  Sender: NOVARTIS
  Company Number: JP-002147023-NVSJ2024JP010455

PATIENT
  Age: 1 Year
  Sex: Female
  Weight: 9.8 kg

DRUGS (5)
  1. TAFINLAR [Suspect]
     Active Substance: DABRAFENIB MESYLATE
     Indication: Brain neoplasm
     Dosage: 25 MG, BID
     Route: 048
     Dates: start: 202311, end: 20240517
  2. MEKINIST [Suspect]
     Active Substance: TRAMETINIB DIMETHYL SULFOXIDE
     Indication: Brain neoplasm
     Dosage: 0.25 MG, QD
     Route: 048
     Dates: start: 202311, end: 20240517
  3. GLYCOSAMINOGLYCANS [Concomitant]
     Active Substance: GLYCOSAMINOGLYCANS
     Indication: Product used for unknown indication
     Route: 003
     Dates: start: 202312
  4. AZUNOL ST [Concomitant]
     Indication: Product used for unknown indication
     Route: 003
     Dates: start: 202312
  5. RINDERON VG [Concomitant]
     Active Substance: BETAMETHASONE VALERATE\GENTAMICIN SULFATE
     Indication: Inflammation
     Dosage: ONCE DAILY TRACHEOSTOMY SITE, ADJUSTED ACCORDING TO INFLAMMATION
     Route: 003
     Dates: start: 202401

REACTIONS (1)
  - Interstitial lung disease [Fatal]

NARRATIVE: CASE EVENT DATE: 20240519
